FAERS Safety Report 8972641 (Version 1)
Quarter: 2012Q4

REPORT INFORMATION
  Report Type: 
  Country: US (occurrence: US)
  Receive Date: 20121219
  Receipt Date: 20121219
  Transmission Date: 20130627
  Serious: No
  Sender: FDA-Public Use
  Company Number: US-BIOGENIDEC-2012BI060176

PATIENT
  Sex: Female

DRUGS (2)
  1. TYSABRI [Suspect]
     Indication: MULTIPLE SCLEROSIS
     Route: 042
     Dates: start: 20071105, end: 20090108
  2. TYSABRI [Suspect]
     Indication: MULTIPLE SCLEROSIS
     Route: 042
     Dates: start: 20101220

REACTIONS (2)
  - Nasopharyngitis [Unknown]
  - Pyrexia [Unknown]
